FAERS Safety Report 7273716-X (Version None)
Quarter: 2011Q1

REPORT INFORMATION
  Report Type: 
  Country: None (occurrence: None)
  Receive Date: 20110203
  Receipt Date: 20110201
  Transmission Date: 20110831
  Serious: Yes (Other)
  Sender: FDA-Public Use
  Company Number: AU-PFIZER INC-2010178737

PATIENT
  Age: 68 Year
  Sex: Female
  Weight: 80 kg

DRUGS (6)
  1. VALPROATE [Interacting]
     Indication: EPILEPSY
     Dosage: 500 MG, 2X/DAY
     Route: 048
     Dates: start: 19750101, end: 19840101
  2. VALPROATE [Interacting]
     Dosage: 200 MG, 2X/DAY
     Route: 048
     Dates: start: 19840101
  3. CLIMARA [Concomitant]
     Indication: HORMONE REPLACEMENT THERAPY
     Dosage: 50 UG, WEEKLY
     Dates: start: 20100901
  4. TOPAMAX [Concomitant]
     Dosage: 50 MG, 2X/DAY
     Route: 048
     Dates: start: 20071101
  5. MICARDIS [Concomitant]
     Indication: HYPERTENSION
     Dosage: 40 MG, 1X/DAY IN THE MORNING
     Route: 048
     Dates: start: 20070501
  6. LYRICA [Suspect]
     Indication: NEURALGIA
     Dosage: 75 MG, 2X/DAY
     Route: 048
     Dates: start: 20100601

REACTIONS (5)
  - ELECTROENCEPHALOGRAM ABNORMAL [None]
  - SLEEP PHASE RHYTHM DISTURBANCE [None]
  - DRUG EFFECT DECREASED [None]
  - PAIN IN EXTREMITY [None]
  - DRUG INTERACTION [None]
